FAERS Safety Report 6108918-9 (Version None)
Quarter: 2009Q1

REPORT INFORMATION
  Report Type: 
  Country: None (occurrence: None)
  Receive Date: 20090306
  Receipt Date: 20090224
  Transmission Date: 20090719
  Serious: Yes (Other)
  Sender: FDA-Public Use
  Company Number: 2008S1000126

PATIENT
  Age: 30 Year
  Sex: Female

DRUGS (2)
  1. SORIATANE [Suspect]
     Indication: PSORIASIS
     Dosage: 35 MG;QD;PO : 25 MG;QD;PO
     Route: 048
     Dates: start: 20070501, end: 20070601
  2. SORIATANE [Suspect]
     Indication: PSORIASIS
     Dosage: 35 MG;QD;PO : 25 MG;QD;PO
     Route: 048
     Dates: start: 20070601, end: 20070715

REACTIONS (4)
  - ABORTION INDUCED [None]
  - DRUG EXPOSURE DURING PREGNANCY [None]
  - TREATMENT NONCOMPLIANCE [None]
  - TWIN PREGNANCY [None]
